FAERS Safety Report 6600882-9 (Version None)
Quarter: 2010Q1

REPORT INFORMATION
  Report Type: 
  Country: None (occurrence: None)
  Receive Date: 20100225
  Receipt Date: 20100107
  Transmission Date: 20100710
  Serious: No
  Sender: FDA-Public Use
  Company Number: A0838493A

PATIENT
  Age: 20 Year
  Sex: Female

DRUGS (2)
  1. LAMICTAL CD [Suspect]
     Indication: BIPOLAR DISORDER
     Dosage: 50MG TWICE PER DAY
     Route: 048
  2. SUBOXONE [Concomitant]

REACTIONS (2)
  - EYE IRRITATION [None]
  - EYE PRURITUS [None]
